FAERS Safety Report 17067199 (Version 1)
Quarter: 2019Q4

REPORT INFORMATION
  Report Type: Spontaneous
  Country: US (occurrence: US)
  Receive Date: 20191122
  Receipt Date: 20191122
  Transmission Date: 20200122
  Serious: No
  Sender: FDA-Public Use
  Company Number: US-PERRIGO-19US011316

PATIENT
  Sex: Male
  Weight: 61.22 kg

DRUGS (1)
  1. NICOTINE POLACRILEX [Suspect]
     Active Substance: NICOTINE
     Indication: TOBACCO ABUSE
     Dosage: 4 TO 8 MG, EVERY 4 HOURS (9 LOZENGES DAILY)
     Route: 002
     Dates: start: 2016

REACTIONS (8)
  - Back pain [Not Recovered/Not Resolved]
  - Off label use [Not Recovered/Not Resolved]
  - Anxiety [Not Recovered/Not Resolved]
  - Urinary tract infection [Recovered/Resolved]
  - Wrong technique in product usage process [Not Recovered/Not Resolved]
  - Panic attack [Not Recovered/Not Resolved]
  - Kidney infection [Recovered/Resolved]
  - Nephrolithiasis [Recovered/Resolved]

NARRATIVE: CASE EVENT DATE: 2016
